FAERS Safety Report 8115961-7 (Version None)
Quarter: 2011Q4

REPORT INFORMATION
  Report Type: 
  Country: None (occurrence: None)
  Receive Date: 20111227
  Receipt Date: 20111005
  Transmission Date: 20120403
  Serious: Yes (Other)
  Sender: FDA-Public Use
  Company Number: PHHY2011US48454

PATIENT
  Age: 47 Year
  Sex: Male
  Weight: 85.3 kg

DRUGS (15)
  1. MULTI-VITAMINS (CALCIUM PANTOTHENATE, FOLIC ACID, VITAMINS NOS) [Concomitant]
  2. LIPITOR [Concomitant]
  3. CIALIS [Concomitant]
  4. TIZANIDINE HCL [Concomitant]
  5. NSAID'S (NO INGREDIENTS/SUBSTANCES) [Concomitant]
  6. GILENYA [Suspect]
     Indication: MULTIPLE SCLEROSIS
     Dosage: 0.5 MG, DAILY, ORAL, 0.5 MG, 0.5 MG, QD, ORAL
     Route: 048
     Dates: start: 20110617
  7. GILENYA [Suspect]
     Indication: MULTIPLE SCLEROSIS
     Dosage: 0.5 MG, DAILY, ORAL, 0.5 MG, 0.5 MG, QD, ORAL
     Route: 048
     Dates: start: 20110429
  8. GILENYA [Suspect]
     Indication: MULTIPLE SCLEROSIS
     Dosage: 0.5 MG, DAILY, ORAL, 0.5 MG, 0.5 MG, QD, ORAL
     Route: 048
     Dates: start: 20110317
  9. FISH OIL (FISH OIL) [Concomitant]
  10. VITAMIN D [Concomitant]
  11. LYRICA [Concomitant]
  12. OXYCODONE HCL [Concomitant]
  13. MILK THISTLE [Concomitant]
  14. POLYETHYLENE GLYCOL 3350 (MACROGOL 3350) [Concomitant]
  15. ECHINACEA (ECHINACEA ANGUSTIFOLIA) [Concomitant]

REACTIONS (3)
  - ALANINE AMINOTRANSFERASE INCREASED [None]
  - ASPARTATE AMINOTRANSFERASE INCREASED [None]
  - LIVER FUNCTION TEST ABNORMAL [None]
